FAERS Safety Report 21548016 (Version 1)
Quarter: 2022Q4

REPORT INFORMATION
  Report Type: Spontaneous
  Country: FR (occurrence: FR)
  Receive Date: 20221103
  Receipt Date: 20221103
  Transmission Date: 20230113
  Serious: Yes (Death, Hospitalization, Other)
  Sender: FDA-Public Use
  Company Number: FR-aspen-JPL2020FR001423AA

PATIENT
  Age: 77 Year
  Sex: Male
  Weight: 110 kg

DRUGS (8)
  1. TELMISARTAN [Suspect]
     Active Substance: TELMISARTAN
     Indication: Hypertension
     Dosage: 80 MG, QD
     Route: 048
  2. SOTALOL HYDROCHLORIDE [Suspect]
     Active Substance: SOTALOL HYDROCHLORIDE
     Indication: Hypertension
     Dosage: 40 MG, QD
     Route: 048
     Dates: start: 20190206
  3. NAPROXEN [Suspect]
     Active Substance: NAPROXEN
     Indication: Carpal tunnel syndrome
     Dosage: UNK
     Route: 048
     Dates: start: 2018, end: 201902
  4. LEVOTHYROXINE [Suspect]
     Active Substance: LEVOTHYROXINE
     Indication: Hypothyroidism
     Dosage: 1 DOSAGE FORM, QD
     Route: 048
  5. HYDROXYUREA [Suspect]
     Active Substance: HYDROXYUREA
     Indication: Essential thrombocythaemia
     Dosage: 1500 MG, QD
     Route: 048
  6. URAPIDIL [Suspect]
     Active Substance: URAPIDIL
     Indication: Hypertension
     Dosage: 30 MG, QD
     Route: 048
  7. FLUINDIONE [Suspect]
     Active Substance: FLUINDIONE
     Indication: Atrial fibrillation
     Dosage: 1 DOSAGE FORM, QD
     Route: 048
  8. VITAMIN K [Concomitant]
     Active Substance: PHYTONADIONE
     Indication: Product used for unknown indication
     Dosage: UNK
     Route: 065

REACTIONS (8)
  - Shock haemorrhagic [Fatal]
  - Rectal haemorrhage [Fatal]
  - Cardio-respiratory arrest [Fatal]
  - Blood pressure decreased [Fatal]
  - Diverticulum [Unknown]
  - Abdominal pain [Unknown]
  - Haemoglobin decreased [Unknown]
  - Ischaemia [Unknown]

NARRATIVE: CASE EVENT DATE: 20190205
